FAERS Safety Report 25889571 (Version 1)
Quarter: 2025Q4

REPORT INFORMATION
  Report Type: Spontaneous
  Country: US (occurrence: None)
  Receive Date: 20251006
  Receipt Date: 20251006
  Transmission Date: 20260118
  Serious: Yes (Hospitalization)
  Sender: FDA-CTU
  Company Number: None

PATIENT
  Sex: Male

DRUGS (3)
  1. TICE BCG [Suspect]
     Active Substance: BACILLUS CALMETTE-GUERIN SUBSTRAIN TICE LIVE ANTIGEN
     Indication: Bladder cancer
  2. AYVAKIT [Suspect]
     Active Substance: AVAPRITINIB
     Indication: Advanced systemic mastocytosis
  3. AYVAKIT [Suspect]
     Active Substance: AVAPRITINIB

REACTIONS (4)
  - Adverse drug reaction [None]
  - Pyrexia [None]
  - Bladder cancer [None]
  - Therapy interrupted [None]

NARRATIVE: CASE EVENT DATE: 20250204
